FAERS Safety Report 6133736-5 (Version None)
Quarter: 2009Q1

REPORT INFORMATION
  Report Type: 
  Country: None (occurrence: None)
  Receive Date: 20090326
  Receipt Date: 20090317
  Transmission Date: 20090719
  Serious: Yes (Hospitalization)
  Sender: FDA-Public Use
  Company Number: Z0000653A

PATIENT
  Age: 75 Year
  Sex: Female
  Weight: 88.6 kg

DRUGS (11)
  1. LAPATINIB [Suspect]
     Dosage: 1250MG PER DAY
     Route: 048
     Dates: start: 20081222
  2. PACLITAXEL [Suspect]
     Dosage: 125MGM2 CYCLIC
     Route: 042
     Dates: start: 20081222
  3. MAGNESIUM CITRATE [Concomitant]
     Indication: RENAL FAILURE
     Dosage: 148ML AS REQUIRED
     Route: 048
     Dates: start: 20090105, end: 20090113
  4. SODIUM CHLORIDE [Concomitant]
     Indication: DEHYDRATION
     Dosage: 125ML CONTINUOUS
     Route: 042
     Dates: start: 20080105, end: 20080105
  5. D5W WITH SODIUM BICARB [Concomitant]
     Indication: RENAL FAILURE
     Dosage: 150MEQ CONTINUOUS
     Route: 042
     Dates: start: 20080105, end: 20080106
  6. POTASSIUM CHLORIDE [Concomitant]
     Indication: RENAL FAILURE
     Dosage: 20MEQ TWICE PER DAY
     Route: 048
     Dates: start: 20080106, end: 20080108
  7. .5 NORMAL SALINE [Concomitant]
     Indication: RENAL FAILURE
     Dosage: 250ML SINGLE DOSE
     Route: 042
     Dates: start: 20080106, end: 20080106
  8. NEUPOGEN [Concomitant]
     Indication: PROPHYLAXIS
     Dosage: 300MCG PER DAY
     Route: 042
     Dates: start: 20080107, end: 20080109
  9. 1/2 NORMAL SALINE WITH SODIUM BICARBONATE [Concomitant]
     Indication: RENAL FAILURE
     Dosage: 75MEQ CONTINUOUS
     Route: 042
     Dates: start: 20080106, end: 20080108
  10. POTASSIUM CHLORIDE [Concomitant]
     Dosage: 40MEQ TWICE PER DAY
     Route: 048
     Dates: start: 20080108, end: 20080109
  11. SODIUM CHLORIDE [Concomitant]
     Indication: RENAL FAILURE
     Dosage: 100ML CONTINUOUS
     Route: 042
     Dates: start: 20080110, end: 20080113

REACTIONS (1)
  - RENAL FAILURE [None]
